FAERS Safety Report 24714483 (Version 1)
Quarter: 2024Q4

REPORT INFORMATION
  Report Type: Spontaneous
  Country: GB (occurrence: GB)
  Receive Date: 20241209
  Receipt Date: 20241209
  Transmission Date: 20250114
  Serious: Yes (Hospitalization, Other)
  Sender: ORGANON
  Company Number: None

PATIENT
  Age: 39 Year
  Sex: Female
  Weight: 83 kg

DRUGS (4)
  1. NEXPLANON [Suspect]
     Active Substance: ETONOGESTREL
     Indication: Ill-defined disorder
     Dosage: USE AS DIRECTED, 1 IMPLANT
     Route: 059
     Dates: start: 20240926
  2. DESOGESTREL [Concomitant]
     Active Substance: DESOGESTREL
     Indication: Ill-defined disorder
     Dosage: TAKE ONE DAILY FOR CONTRACEPTION - PROGESTERONE ONLY
     Dates: start: 20241129
  3. FLUCLOXACILLIN [Concomitant]
     Active Substance: FLUCLOXACILLIN
     Indication: Ill-defined disorder
     Dosage: TAKE ONE 4 TIMES/DAY
     Dates: start: 20241112, end: 20241119
  4. MEDROXYPROGESTERONE\MEDROXYPROGESTERONE ACETATE [Concomitant]
     Active Substance: MEDROXYPROGESTERONE\MEDROXYPROGESTERONE ACETATE
     Indication: Ill-defined disorder
     Dosage: USE ONE DEVICE EVERY 13 WEEKS
     Dates: start: 20240105, end: 20241010

REACTIONS (4)
  - Seizure [Unknown]
  - Bacillus infection [Recovering/Resolving]
  - Application site erythema [Not Recovered/Not Resolved]
  - Pain [Unknown]
